FAERS Safety Report 13349524 (Version 1)
Quarter: 2017Q1

REPORT INFORMATION
  Report Type: Spontaneous
  Country: HU (occurrence: HU)
  Receive Date: 20170320
  Receipt Date: 20170320
  Transmission Date: 20170428
  Serious: Yes (Death, Other)
  Sender: FDA-Public Use
  Company Number: HU-ACTELION-A-CH2017-151170

PATIENT
  Sex: Female

DRUGS (7)
  1. OPSUMIT [Suspect]
     Active Substance: MACITENTAN
     Indication: PULMONARY ARTERIAL HYPERTENSION
     Dosage: 10 MG, OD
     Route: 048
     Dates: start: 2014
  2. ADCIRCA [Concomitant]
     Active Substance: TADALAFIL
     Indication: PULMONARY ARTERIAL HYPERTENSION
     Dosage: 20 MG, BID
     Route: 048
     Dates: start: 2016
  3. FUROSEMID [Concomitant]
     Active Substance: FUROSEMIDE
     Indication: CARDIAC FAILURE
     Dosage: 250 MG, OD
     Route: 048
     Dates: start: 2016
  4. BERODUAL [Concomitant]
     Active Substance: FENOTEROL HYDROBROMIDE\IPRATROPIUM BROMIDE
     Indication: RESPIRATORY FAILURE
     Dosage: UNK, BID
  5. GLURENORM [Concomitant]
     Indication: DIABETES MELLITUS
     Dosage: UNK, BID
  6. VEROSPIRON [Concomitant]
     Active Substance: SPIRONOLACTONE
     Indication: CARDIAC FAILURE
     Dosage: 25 MG, OD
     Route: 048
     Dates: start: 2016
  7. NEBIVOLOL. [Concomitant]
     Active Substance: NEBIVOLOL
     Dosage: 5 MG, BID

REACTIONS (7)
  - Right ventricular failure [Fatal]
  - Urinary tract infection [Unknown]
  - Renal failure [Unknown]
  - Respiratory failure [Fatal]
  - Bronchitis [Fatal]
  - Upper respiratory tract infection [Unknown]
  - Pulmonary hypertension [Unknown]
